FAERS Safety Report 6267789-0 (Version None)
Quarter: 2009Q3

REPORT INFORMATION
  Report Type: 
  Country: None (occurrence: None)
  Receive Date: 20090714
  Receipt Date: 20090630
  Transmission Date: 20100115
  Serious: Yes (Hospitalization, Other)
  Sender: FDA-Public Use
  Company Number: GB-MYLANLABS-2009S1011582

PATIENT
  Age: 11 Year
  Sex: Male

DRUGS (9)
  1. OXCARBAZEPINE [Interacting]
     Indication: DRUG USE FOR UNKNOWN INDICATION
  2. CLOBAZAM [Interacting]
     Indication: DRUG USE FOR UNKNOWN INDICATION
  3. LEVETIRACETAM [Suspect]
     Indication: DRUG USE FOR UNKNOWN INDICATION
  4. RUFINAMIDE [Interacting]
     Indication: DROP ATTACKS
     Route: 048
  5. RUFINAMIDE [Interacting]
     Indication: LEARNING DISABILITY
     Route: 048
  6. RUFINAMIDE [Interacting]
     Route: 048
  7. RUFINAMIDE [Interacting]
     Route: 048
  8. RUFINAMIDE [Interacting]
     Route: 048
  9. RUFINAMIDE [Interacting]
     Route: 048

REACTIONS (2)
  - AGGRESSION [None]
  - DRUG INTERACTION [None]
